FAERS Safety Report 9303698 (Version 1)
Quarter: 2013Q2

REPORT INFORMATION
  Report Type: Spontaneous
  Country: US (occurrence: US)
  Receive Date: 20130522
  Receipt Date: 20130522
  Transmission Date: 20140414
  Serious: Yes (Hospitalization)
  Sender: FDA-Public Use
  Company Number: US-GLAXOSMITHKLINE-A0695003A

PATIENT
  Age: 58 Year
  Sex: Male
  Weight: 88.6 kg

DRUGS (7)
  1. AVANDIA [Suspect]
     Indication: TYPE 2 DIABETES MELLITUS
     Dosage: 4MG PER DAY
     Route: 048
     Dates: start: 1999, end: 200705
  2. HUMALOG [Concomitant]
     Dates: start: 1980
  3. LANTUS [Concomitant]
     Dates: start: 1980
  4. BEXTRA [Concomitant]
     Dates: start: 2002, end: 2005
  5. SERTRALINE [Concomitant]
     Dates: start: 2000
  6. NEPHROCAPS [Concomitant]
  7. METOCLOPRAMIDE [Concomitant]

REACTIONS (3)
  - Myocardial infarction [Not Recovered/Not Resolved]
  - Supraventricular tachycardia [Unknown]
  - Atrial fibrillation [Unknown]
